FAERS Safety Report 6818119-4 (Version None)
Quarter: 2010Q3

REPORT INFORMATION
  Report Type: 
  Country: None (occurrence: None)
  Receive Date: 20100706
  Receipt Date: 20100628
  Transmission Date: 20110219
  Serious: Yes (Other)
  Sender: FDA-Public Use
  Company Number: CHPA2010US10867

PATIENT
  Sex: Male

DRUGS (1)
  1. PREVACID 24 HR [Suspect]
     Dosage: UNK, UNK
     Route: 048
     Dates: start: 20100628

REACTIONS (3)
  - CYANOSIS [None]
  - PRESYNCOPE [None]
  - SPEECH DISORDER [None]
